FAERS Safety Report 7437994-6 (Version None)
Quarter: 2011Q2

REPORT INFORMATION
  Report Type: 
  Country: None (occurrence: None)
  Receive Date: 20110426
  Receipt Date: 20110419
  Transmission Date: 20111010
  Serious: Yes (Death, Other)
  Sender: FDA-Public Use
  Company Number: RU-GENZYME-FLUD-1001089

PATIENT

DRUGS (5)
  1. ANTI-THYMOCYTE GLOBULIN NOS [Suspect]
     Indication: STEM CELL TRANSPLANT
     Route: 065
  2. FLUDARA [Suspect]
     Indication: STEM CELL TRANSPLANT
     Route: 065
  3. VINCRISTINE [Concomitant]
     Indication: T-CELL DEPLETION
  4. METHYLPREDNISOLONE [Concomitant]
     Indication: T-CELL DEPLETION
     Route: 065
  5. BUSULFAN [Suspect]
     Indication: STEM CELL TRANSPLANT
     Route: 065

REACTIONS (6)
  - ACUTE GRAFT VERSUS HOST DISEASE [None]
  - CHRONIC GRAFT VERSUS HOST DISEASE [None]
  - INFECTION [None]
  - RECURRENT CANCER [None]
  - TRANSPLANT REJECTION [None]
  - NEOPLASM MALIGNANT [None]
